FAERS Safety Report 4498870-4 (Version None)
Quarter: 2004Q4

REPORT INFORMATION
  Report Type: 
  Country: None (occurrence: None)
  Receive Date: 20041108
  Receipt Date: 20041026
  Transmission Date: 20050328
  Serious: Yes (Other)
  Sender: FDA-Public Use
  Company Number: 2003040767

PATIENT
  Age: 49 Year
  Sex: Male

DRUGS (1)
  1. ZYRTEC [Suspect]
     Indication: HYPERSENSITIVITY
     Dosage: 10 MG (DAILY), ORAL
     Route: 048
     Dates: start: 20030903, end: 20030903

REACTIONS (4)
  - DIZZINESS [None]
  - FEELING ABNORMAL [None]
  - THERAPY NON-RESPONDER [None]
  - WEST NILE VIRAL INFECTION [None]
